FAERS Safety Report 5718677-7 (Version None)
Quarter: 2008Q2

REPORT INFORMATION
  Report Type: 
  Country: None (occurrence: None)
  Receive Date: 20080423
  Receipt Date: 20071204
  Transmission Date: 20081010
  Serious: Yes (Other)
  Sender: FDA-Public Use
  Company Number: 0003072905-2007-00001

PATIENT
  Sex: Female
  Weight: 68.9 kg

DRUGS (1)
  1. ALLOGENEIC HPC, APHERESIS [Suspect]
     Indication: APLASTIC ANAEMIA
     Dosage: 320 ML, DRIP 041 INTRAVENOUS
     Route: 042
     Dates: start: 20071204, end: 20071204

REACTIONS (2)
  - POOR QUALITY DRUG ADMINISTERED [None]
  - TRANSMISSION OF AN INFECTIOUS AGENT VIA A MEDICINAL PRODUCT [None]
